FAERS Safety Report 15410832 (Version 1)
Quarter: 2018Q3

REPORT INFORMATION
  Report Type: Spontaneous
  Country: DE (occurrence: DE)
  Receive Date: 20180921
  Receipt Date: 20180921
  Transmission Date: 20181010
  Serious: Yes (Other)
  Sender: FDA-Public Use
  Company Number: DE-009507513-1809DEU009121

PATIENT
  Age: 6 Decade
  Sex: Female

DRUGS (4)
  1. DORZOLAMIDE HYDROCHLORIDE. [Suspect]
     Active Substance: DORZOLAMIDE HYDROCHLORIDE
     Indication: PRODUCT USED FOR UNKNOWN INDICATION
     Route: 065
  2. MONOPROST [Suspect]
     Active Substance: LATANOPROST
     Indication: PRODUCT USED FOR UNKNOWN INDICATION
     Route: 065
  3. CLONID?OPHTAL [Suspect]
     Active Substance: CLONIDINE HYDROCHLORIDE
     Indication: PRODUCT USED FOR UNKNOWN INDICATION
     Dosage: PRESCRIBED ONCE DAILY, 1 EYE ALREADY BEEN ADMINISTERED IN BOTH EYES BY MISTAKE
     Route: 047
     Dates: start: 201808
  4. MONOPROST [Suspect]
     Active Substance: LATANOPROST
     Route: 065

REACTIONS (5)
  - Dyspnoea [Unknown]
  - Impaired work ability [Not Recovered/Not Resolved]
  - Blood pressure decreased [Not Recovered/Not Resolved]
  - Impaired driving ability [Not Recovered/Not Resolved]
  - Drug administration error [Unknown]

NARRATIVE: CASE EVENT DATE: 201808
